FAERS Safety Report 16438115 (Version 4)
Quarter: 2020Q2

REPORT INFORMATION
  Report Type: Spontaneous
  Country: US (occurrence: US)
  Receive Date: 20190617
  Receipt Date: 20200518
  Transmission Date: 20200713
  Serious: Yes (Hospitalization)
  Sender: FDA-Public Use
  Company Number: US-ROCHE-2336264

PATIENT
  Age: 38 Year
  Sex: Male

DRUGS (4)
  1. PULMOZYME [Suspect]
     Active Substance: DORNASE ALFA
     Indication: PRODUCT USED FOR UNKNOWN INDICATION
     Dosage: ONGOING: YES?PULMOZYME 1MG/ML AMP
     Route: 065
     Dates: start: 201807
  2. PULMOZYME [Suspect]
     Active Substance: DORNASE ALFA
     Route: 065
     Dates: start: 2001
  3. PULMOZYME [Suspect]
     Active Substance: DORNASE ALFA
     Dosage: 1 MG/ML; ONGOING: YES
     Route: 048
     Dates: start: 201907
  4. PULMOZYME [Suspect]
     Active Substance: DORNASE ALFA
     Dosage: PULMOZYME 1MG/ML AMP*REFRIG, DAILY
     Route: 050
     Dates: start: 201905

REACTIONS (2)
  - Cystic fibrosis [Unknown]
  - Pneumonia [Unknown]

NARRATIVE: CASE EVENT DATE: 20190506
